FAERS Safety Report 5895688-2 (Version None)
Quarter: 2008Q3

REPORT INFORMATION
  Report Type: 
  Country: None (occurrence: None)
  Receive Date: 20080924
  Receipt Date: 20071029
  Transmission Date: 20090109
  Serious: No
  Sender: FDA-Public Use
  Company Number: US-BAYER-200714191BWH

PATIENT
  Age: 53 Year
  Sex: Male

DRUGS (1)
  1. CIPRO [Suspect]
     Indication: EPIDIDYMITIS
     Route: 048
     Dates: start: 20070911, end: 20070913

REACTIONS (2)
  - DRUG ERUPTION [None]
  - PARAESTHESIA [None]
